FAERS Safety Report 13488399 (Version 1)
Quarter: 2017Q2

REPORT INFORMATION
  Report Type: Spontaneous
  Country: US (occurrence: US)
  Receive Date: 20170426
  Receipt Date: 20170426
  Transmission Date: 20170830
  Serious: No
  Sender: FDA-Public Use
  Company Number: None

PATIENT
  Age: 68 Year
  Sex: Male

DRUGS (1)
  1. TALTZ [Suspect]
     Active Substance: IXEKIZUMAB
     Indication: PSORIASIS
     Dosage: 80MG QMONTH SQ
     Route: 058
     Dates: start: 201611, end: 201704

REACTIONS (2)
  - Drug effect decreased [None]
  - Unevaluable event [None]

NARRATIVE: CASE EVENT DATE: 201704
